FAERS Safety Report 15406623 (Version 3)
Quarter: 2018Q4

REPORT INFORMATION
  Report Type: Spontaneous
  Country: JP (occurrence: JP)
  Receive Date: 20180920
  Receipt Date: 20181122
  Transmission Date: 20190204
  Serious: Yes (Hospitalization)
  Sender: FDA-Public Use
  Company Number: JP-BAUSCH-BL-2018-025006

PATIENT
  Age: 64 Year
  Sex: Female
  Weight: 45.6 kg

DRUGS (9)
  1. FAMOTIDINE. [Suspect]
     Active Substance: FAMOTIDINE
     Indication: PRODUCT USE IN UNAPPROVED INDICATION
  2. FAMOTIDINE. [Suspect]
     Active Substance: FAMOTIDINE
     Indication: PROPHYLAXIS OF NAUSEA AND VOMITING
     Route: 048
     Dates: start: 20180515, end: 20180607
  3. ALOXI [Suspect]
     Active Substance: PALONOSETRON HYDROCHLORIDE
     Indication: PROPHYLAXIS OF NAUSEA AND VOMITING
     Route: 041
     Dates: start: 20180515, end: 20180605
  4. ELPLAT [Suspect]
     Active Substance: OXALIPLATIN
     Indication: COLON CANCER METASTATIC
     Route: 041
     Dates: start: 20180515, end: 20180605
  5. DEXART [Suspect]
     Active Substance: DEXAMETHASONE SODIUM PHOSPHATE
     Indication: PROPHYLAXIS OF NAUSEA AND VOMITING
     Route: 041
     Dates: start: 20180515, end: 20180605
  6. FERROUS CITRATE NA [Suspect]
     Active Substance: SODIUM FERROUS CITRATE
     Indication: ANAEMIA
     Dosage: DURATION: 1 MONTH 23 DAYS
     Route: 048
     Dates: start: 20180515, end: 20180707
  7. TS-1 [Suspect]
     Active Substance: GIMERACIL\OTERACIL\TEGAFUR
     Indication: COLON CANCER METASTATIC
     Dosage: 2-WEEK-ON, 1-WEEK-OFF SCHEDULE, DURATION : 1 MONTH AND 4 DAYS
     Route: 048
     Dates: start: 20180515, end: 20180618
  8. AVASTIN [Suspect]
     Active Substance: BEVACIZUMAB
     Indication: COLON CANCER METASTATIC
     Dosage: ON DAY ONE
     Route: 041
     Dates: start: 20180515, end: 20180605
  9. DECADRON [Suspect]
     Active Substance: DEXAMETHASONE
     Indication: PROPHYLAXIS OF NAUSEA AND VOMITING
     Route: 048
     Dates: start: 20180515, end: 20180607

REACTIONS (10)
  - Nausea [Recovered/Resolved]
  - Hypophagia [Recovered/Resolved]
  - Vomiting [Recovered/Resolved]
  - Vitamin D deficiency [Unknown]
  - Hypokalaemia [Recovering/Resolving]
  - Product use in unapproved indication [Recovered/Resolved]
  - Tetany [Recovered/Resolved]
  - Diarrhoea [Recovered/Resolved]
  - Hypomagnesaemia [Recovered/Resolved]
  - Hypocalcaemia [Recovered/Resolved]

NARRATIVE: CASE EVENT DATE: 2018
